FAERS Safety Report 6765939-0 (Version None)
Quarter: 2010Q2

REPORT INFORMATION
  Report Type: 
  Country: None (occurrence: None)
  Receive Date: 20100611
  Receipt Date: 20100602
  Transmission Date: 20101027
  Serious: Yes (Hospitalization)
  Sender: FDA-Public Use
  Company Number: US-ELI_LILLY_AND_COMPANY-US201005007750

PATIENT
  Sex: Male
  Weight: 88.9 kg

DRUGS (6)
  1. PRASUGREL HYDROCHLORIDE [Suspect]
     Indication: ACUTE CORONARY SYNDROME
     Dosage: 60 MG, DAILY (1/D)
     Route: 048
     Dates: start: 20100521
  2. PRASUGREL HYDROCHLORIDE [Suspect]
     Dosage: 10 MG, DAILY (1/D)
     Dates: start: 20100523
  3. ASPIRIN [Concomitant]
     Indication: CORONARY ARTERY DISEASE
     Dosage: 325 MG, DAILY (1/D)
     Route: 048
     Dates: start: 20100521
  4. LOVENOX [Concomitant]
     Indication: CORONARY ARTERY DISEASE
     Dosage: 90 MG, 2/D
     Route: 058
     Dates: start: 20100519, end: 20100520
  5. METOPROLOL TARTRATE [Concomitant]
     Indication: HYPERTENSION
     Dosage: 50 MG, DAILY (1/D)
     Dates: start: 20100523
  6. SIMVASTATIN [Concomitant]
     Indication: HYPERCHOLESTEROLAEMIA
     Dosage: UNK, DAILY (1/D)
     Route: 048
     Dates: start: 20100522

REACTIONS (1)
  - CHEST DISCOMFORT [None]
